FAERS Safety Report 5379395-0 (Version None)
Quarter: 2007Q3

REPORT INFORMATION
  Report Type: 
  Country: None (occurrence: None)
  Receive Date: 20070703
  Receipt Date: 20070627
  Transmission Date: 20080115
  Serious: Yes (Other)
  Sender: FDA-Public Use
  Company Number: 015505

PATIENT
  Sex: Female

DRUGS (3)
  1. MEDROXYPROGESTERONE ACETATE(MEDROXPROGESTERONE ACETATE) TABLET [Suspect]
     Dosage: ORAL
     Route: 048
     Dates: start: 19940601
  2. PREMARIN [Suspect]
     Dosage: ORAL
     Route: 048
     Dates: start: 19940601
  3. PROVERA [Suspect]
     Dosage: ORAL
     Route: 048
     Dates: start: 19940601

REACTIONS (1)
  - BREAST CANCER [None]
